FAERS Safety Report 5835957-5 (Version None)
Quarter: 2008Q3

REPORT INFORMATION
  Report Type: 
  Country: None (occurrence: None)
  Receive Date: 20080805
  Receipt Date: 20080731
  Transmission Date: 20090109
  Serious: Yes (Life-Threatening, Hospitalization)
  Sender: FDA-Public Use
  Company Number: 2008-02026

PATIENT
  Age: 66 Year
  Sex: Male
  Weight: 65 kg

DRUGS (3)
  1. VELCADE [Suspect]
     Indication: DRUG USE FOR UNKNOWN INDICATION
     Dosage: 2.2 MG, INTRAVENOUS
     Route: 042
     Dates: start: 20080111, end: 20080211
  2. VELCADE [Suspect]
     Indication: DRUG USE FOR UNKNOWN INDICATION
     Dosage: 2.2 MG, INTRAVENOUS
     Route: 042
     Dates: start: 20080301, end: 20080301
  3. RIBOMUSTIN (BENDAMUSTINE) [Suspect]
     Indication: DRUG USE FOR UNKNOWN INDICATION

REACTIONS (10)
  - CHEST PAIN [None]
  - COLITIS [None]
  - DIARRHOEA [None]
  - DYSPEPSIA [None]
  - GASTROINTESTINAL PAIN [None]
  - HYPONATRAEMIA [None]
  - MUCOSAL INFLAMMATION [None]
  - POLYNEUROPATHY [None]
  - RECTAL TENESMUS [None]
  - VOMITING [None]
